FAERS Safety Report 7323721-X (Version None)
Quarter: 2011Q1

REPORT INFORMATION
  Report Type: 
  Country: None (occurrence: None)
  Receive Date: 20110301
  Receipt Date: 20110221
  Transmission Date: 20110831
  Serious: Yes (Hospitalization)
  Sender: FDA-Public Use
  Company Number: US-B.I. PHARMACEUTICALS,INC./RIDGEFIELD-2011-BP-00857BP

PATIENT
  Age: 83 Year
  Sex: Female

DRUGS (13)
  1. METHOTREXATE [Concomitant]
  2. PRADAXA [Suspect]
     Indication: CARDIAC DISORDER
  3. CENTRUM SILVER [Concomitant]
  4. BUMTAIE [Concomitant]
     Indication: FLUID RETENTION
     Dosage: 1.5 MG
  5. COLACE [Concomitant]
  6. ASPIRIN [Concomitant]
     Dosage: 325 MG
  7. ZANTAC [Concomitant]
  8. PRADAXA [Suspect]
     Indication: ATRIAL FIBRILLATION
     Dosage: 300 MG
     Route: 048
     Dates: start: 20101201, end: 20110109
  9. VITAMIN D [Concomitant]
     Dosage: 2000 U
  10. BENECOR [Concomitant]
     Dosage: 20 MG
  11. COREG [Concomitant]
     Dosage: 26 MG
  12. FERROUS SULFATE TAB [Concomitant]
  13. SYNTHROID [Concomitant]
     Dosage: 150 MCG

REACTIONS (5)
  - PAINFUL DEFAECATION [None]
  - FLATULENCE [None]
  - HOSPITALISATION [None]
  - HAEMATOCHEZIA [None]
  - DIARRHOEA [None]
